FAERS Safety Report 15209375 (Version 4)
Quarter: 2018Q3

REPORT INFORMATION
  Report Type: Spontaneous
  Country: JP (occurrence: JP)
  Receive Date: 20180727
  Receipt Date: 20180913
  Transmission Date: 20181010
  Serious: Yes (Hospitalization)
  Sender: FDA-Public Use
  Company Number: JP-NOVOPROD-590844

PATIENT
  Age: 59 Year
  Sex: Male
  Weight: 68.6 kg

DRUGS (26)
  1. TRESIBA CHU FLEXTOUCH [Suspect]
     Active Substance: INSULIN DEGLUDEC
     Dosage: 4 U, QD
     Route: 058
     Dates: start: 20180122
  2. TRESIBA CHU FLEXTOUCH [Suspect]
     Active Substance: INSULIN DEGLUDEC
     Dosage: 10 U, QD
     Route: 058
     Dates: start: 20180203
  3. NOVORAPID [Suspect]
     Active Substance: INSULIN ASPART
     Dosage: 24 U, QD
     Route: 065
     Dates: start: 20180119
  4. NOVORAPID [Suspect]
     Active Substance: INSULIN ASPART
     Dosage: 9?6?8U
     Route: 065
     Dates: start: 20180129
  5. METGLUCO [Concomitant]
     Active Substance: METFORMIN HYDROCHLORIDE
     Dosage: 500 MG, QD
     Route: 065
     Dates: start: 20180214
  6. TRESIBA CHU FLEXTOUCH [Suspect]
     Active Substance: INSULIN DEGLUDEC
     Dosage: 8 U, QD
     Route: 058
     Dates: start: 20180119
  7. TRESIBA CHU FLEXTOUCH [Suspect]
     Active Substance: INSULIN DEGLUDEC
     Dosage: 10 U, QD
     Route: 058
     Dates: start: 20180123
  8. TRESIBA CHU FLEXTOUCH [Suspect]
     Active Substance: INSULIN DEGLUDEC
     Dosage: 6 U, QD
     Route: 058
     Dates: start: 20180129
  9. NOVORAPID [Suspect]
     Active Substance: INSULIN ASPART
     Dosage: 12 U, QD
     Route: 065
     Dates: start: 20180122
  10. NOVORAPID [Suspect]
     Active Substance: INSULIN ASPART
     Dosage: 8?8?10U
     Route: 065
     Dates: start: 20180123
  11. TRAZENTA [Concomitant]
     Active Substance: LINAGLIPTIN
     Indication: TYPE 2 DIABETES MELLITUS
     Dosage: 5 MG, QD
     Route: 048
     Dates: start: 20180201
  12. TRESIBA CHU FLEXTOUCH [Suspect]
     Active Substance: INSULIN DEGLUDEC
     Dosage: 8 U, QD
     Route: 058
     Dates: start: 20180126
  13. NOVORAPID [Suspect]
     Active Substance: INSULIN ASPART
     Dosage: 18 U, QD
     Route: 065
     Dates: start: 20180115
  14. CEFMETAZOLE NA [Concomitant]
     Active Substance: CEFMETAZOLE
     Indication: SKIN ULCER
  15. SUREPOST [Concomitant]
     Active Substance: REPAGLINIDE
     Indication: TYPE 2 DIABETES MELLITUS
     Dosage: 0.25 MG, TID
     Route: 048
     Dates: start: 20180220
  16. TRESIBA CHU FLEXTOUCH [Suspect]
     Active Substance: INSULIN DEGLUDEC
     Dosage: 6 U, QD
     Route: 058
     Dates: start: 20180115
  17. NOVORAPID [Suspect]
     Active Substance: INSULIN ASPART
     Dosage: 24 U, QD
     Route: 065
     Dates: start: 20180126
  18. NOVORAPID [Suspect]
     Active Substance: INSULIN ASPART
     Dosage: 4?4?4U
     Route: 065
     Dates: start: 20180203, end: 20180219
  19. TRESIBA CHU FLEXTOUCH [Suspect]
     Active Substance: INSULIN DEGLUDEC
     Indication: TYPE 2 DIABETES MELLITUS
     Dosage: 4 U, QD
     Route: 058
     Dates: start: 20180111
  20. AMLODIPINE [Concomitant]
     Active Substance: AMLODIPINE BESYLATE
     Indication: HYPERTENSION
     Dosage: UNK
     Route: 065
     Dates: start: 20180123
  21. TRESIBA CHU FLEXTOUCH [Suspect]
     Active Substance: INSULIN DEGLUDEC
     Dosage: 8 U, QD
     Route: 058
     Dates: start: 20180201
  22. NOVORAPID [Suspect]
     Active Substance: INSULIN ASPART
     Indication: TYPE 2 DIABETES MELLITUS
     Dosage: 12 U, QD
     Route: 065
     Dates: start: 20180111
  23. NOVORAPID [Suspect]
     Active Substance: INSULIN ASPART
     Dosage: 8?8?8U
     Route: 065
     Dates: start: 20180201
  24. NOVORAPID [Suspect]
     Active Substance: INSULIN ASPART
     Dosage: UNK
     Route: 065
  25. VANCOMYCIN HYDROCHLORIDE. [Concomitant]
     Active Substance: VANCOMYCIN HYDROCHLORIDE
     Indication: SKIN ULCER
     Dosage: UNK
     Dates: end: 20180122
  26. METGLUCO [Concomitant]
     Active Substance: METFORMIN HYDROCHLORIDE
     Indication: TYPE 2 DIABETES MELLITUS
     Dosage: 250 MG, QD
     Route: 048
     Dates: start: 20180208

REACTIONS (3)
  - Hydronephrosis [Recovered/Resolved]
  - Oedema peripheral [Recovered/Resolved]
  - Penile oedema [Recovered/Resolved]

NARRATIVE: CASE EVENT DATE: 20180126
